FAERS Safety Report 10394132 (Version 1)
Quarter: 2014Q3

REPORT INFORMATION
  Report Type: Spontaneous
  Country: JP (occurrence: JP)
  Receive Date: 20140819
  Receipt Date: 20140819
  Transmission Date: 20150326
  Serious: Yes (Death)
  Sender: FDA-Public Use
  Company Number: PHHY2010JP096497

PATIENT
  Age: 67 Year
  Sex: Female

DRUGS (1)
  1. EXJADE [Suspect]
     Active Substance: DEFERASIROX
     Indication: APLASTIC ANAEMIA
     Dosage: 10 MG/KG, DAILY
     Dates: start: 20080310

REACTIONS (2)
  - Renal disorder [Unknown]
  - Accidental death [Fatal]

NARRATIVE: CASE EVENT DATE: 20090122
